FAERS Safety Report 5139384-8 (Version None)
Quarter: 2006Q4

REPORT INFORMATION
  Report Type: 
  Country: None (occurrence: None)
  Receive Date: 20061026
  Receipt Date: 20061026
  Transmission Date: 20070319
  Serious: Yes (Other)
  Sender: FDA-Public Use
  Company Number: None

PATIENT
  Age: 15 Year
  Sex: Female
  Weight: 59.8748 kg

DRUGS (2)
  1. ORTHO TRI-CYCLEN [Suspect]
     Indication: ACNE
     Dosage: 1 PO QD
     Route: 048
  2. ORTHO TRI-CYCLEN [Suspect]
     Indication: CONTRACEPTION
     Dosage: 1 PO QD
     Route: 048

REACTIONS (1)
  - ACNE [None]
